FAERS Safety Report 9474267 (Version 1)
Quarter: 2013Q3

REPORT INFORMATION
  Report Type: Spontaneous
  Country: FR (occurrence: FR)
  Receive Date: 20130823
  Receipt Date: 20130823
  Transmission Date: 20140515
  Serious: Yes (Hospitalization, Disabling, Other)
  Sender: FDA-Public Use
  Company Number: FR-BRISTOL-MYERS SQUIBB COMPANY-19198597

PATIENT
  Age: 86 Year
  Sex: Female

DRUGS (5)
  1. COUMADINE [Suspect]
     Route: 048
  2. RAMIPRIL [Suspect]
     Dosage: 1DF:2.5 UNITS NOS
     Route: 048
  3. BISOPROLOL [Suspect]
     Dosage: 1DF:2.5 UNITS NOS
     Route: 048
  4. FUROSEMIDE [Suspect]
     Dosage: 1DF:20 UNITS NOS
     Route: 048
  5. AMIODARONE [Suspect]
     Dosage: 1DF:200 UNITS NOS
     Route: 048

REACTIONS (7)
  - Ocular hypertension [Recovered/Resolved with Sequelae]
  - Hyphaema [Recovered/Resolved with Sequelae]
  - International normalised ratio increased [Recovered/Resolved]
  - Vitreous haemorrhage [Unknown]
  - Overdose [Unknown]
  - Conjunctival haemorrhage [Unknown]
  - Corneal oedema [Unknown]
